FAERS Safety Report 6121888-2 (Version None)
Quarter: 2009Q1

REPORT INFORMATION
  Report Type: 
  Country: None (occurrence: None)
  Receive Date: 20090317
  Receipt Date: 20090309
  Transmission Date: 20090719
  Serious: Yes (Other)
  Sender: FDA-Public Use
  Company Number: CA-ALLERGAN-0903320US

PATIENT
  Sex: Male

DRUGS (4)
  1. ALPHAGAN P [Suspect]
     Indication: GLAUCOMA
     Dosage: 1 GTT, BID
     Route: 047
     Dates: start: 20090201
  2. ATENOLOL [Concomitant]
  3. NORVASC [Concomitant]
     Dosage: 5 MG, QD
  4. MACARDIS [Concomitant]
     Dosage: 80 MG, QD

REACTIONS (1)
  - CARDIAC FLUTTER [None]
